FAERS Safety Report 5968166-X (Version None)
Quarter: 2008Q4

REPORT INFORMATION
  Report Type: 
  Country: None (occurrence: None)
  Receive Date: 20081122
  Receipt Date: 20081122
  Transmission Date: 20090506
  Serious: Yes (Hospitalization)
  Sender: FDA-Public Use
  Company Number: None

PATIENT
  Sex: Male
  Weight: 78.5 kg

DRUGS (1)
  1. INTRON A [Suspect]
     Dosage: 34 MILLION IU
     Dates: end: 20080926

REACTIONS (6)
  - DEHYDRATION [None]
  - NEUROPATHY PERIPHERAL [None]
  - PSEUDOMEMBRANOUS COLITIS [None]
  - SYNCOPE [None]
  - URINARY TRACT INFECTION [None]
  - VOMITING [None]
